FAERS Safety Report 20420349 (Version 1)
Quarter: 2022Q1

REPORT INFORMATION
  Report Type: Other
  Country: DE (occurrence: DE)
  Receive Date: 20220203
  Receipt Date: 20220203
  Transmission Date: 20220423
  Serious: Yes (Hospitalization)
  Sender: FDA-Public Use
  Company Number: DE-MACLEODS PHARMACEUTICALS US LTD-MAC2022034232

PATIENT

DRUGS (4)
  1. CELECOXIB [Suspect]
     Active Substance: CELECOXIB
     Indication: Axial spondyloarthritis
     Dosage: 4 DOSAGE FORM, Q.W., 4 DOSAGE FORM, QW (USAGE: 4 TIMES PER WEEK (4XW))
     Route: 065
     Dates: start: 20000101
  2. CELECOXIB [Suspect]
     Active Substance: CELECOXIB
     Dosage: 1600 MILLIGRAM, QW, 400 MILLIGRAM, 4XW
     Route: 065
     Dates: start: 20000101
  3. HULIO [Suspect]
     Active Substance: ADALIMUMAB-FKJP
     Indication: Axial spondyloarthritis
     Dosage: 1 DOSAGE FORM, 1 DOSAGE FORM, Q2W (USAGE: ONCE EVERY 2 WEEKS (Q2W) )
     Route: 065
     Dates: start: 20200428
  4. HULIO [Suspect]
     Active Substance: ADALIMUMAB-FKJP
     Dosage: 40 MILLIGRAM, Q2W
     Route: 065
     Dates: start: 20200428

REACTIONS (2)
  - Oesophagogastric fundoplasty [Recovered/Resolved]
  - Hiatus hernia [Recovered/Resolved]

NARRATIVE: CASE EVENT DATE: 20200915
